FAERS Safety Report 8557689-5 (Version None)
Quarter: 2012Q3

REPORT INFORMATION
  Report Type: 
  Country: None (occurrence: None)
  Receive Date: 20120801
  Receipt Date: 20120727
  Transmission Date: 20120928
  Serious: No
  Sender: FDA-Public Use
  Company Number: US-PFIZER INC-2012120434

PATIENT
  Sex: Male

DRUGS (2)
  1. LIPITOR [Suspect]
     Dosage: 80 MG, 1 TAB AT BEDTIME
  2. VIAGRA [Suspect]
     Dosage: 50 MG, AS DIRECTED

REACTIONS (1)
  - BACK PAIN [None]
